FAERS Safety Report 4632437-X (Version None)
Quarter: 2005Q2

REPORT INFORMATION
  Report Type: 
  Country: None (occurrence: None)
  Receive Date: 20050401
  Receipt Date: 20050112
  Transmission Date: 20051028
  Serious: Yes (Hospitalization)
  Sender: FDA-Public Use
  Company Number: 05P-163-0286298-00

PATIENT
  Age: 68 Year
  Sex: Male

DRUGS (6)
  1. DEPAKOTE [Suspect]
     Indication: CONVULSION
     Dosage: 500 MG, 2 IN 1 D, PER ORAL
     Route: 048
     Dates: end: 20041201
  2. ZONISAMIDE [Concomitant]
  3. CITICOLINE SODIUM [Concomitant]
  4. PROPACET 100 [Concomitant]
  5. PANTOPRAZOLE SODIUM [Concomitant]
  6. ABILIFY [Concomitant]

REACTIONS (2)
  - ENCEPHALOPATHY [None]
  - PANCREATITIS [None]
